FAERS Safety Report 9964167 (Version 2)
Quarter: 2014Q1

REPORT INFORMATION
  Report Type: Spontaneous
  Country: US (occurrence: US)
  Receive Date: 20140305
  Receipt Date: 20140305
  Transmission Date: 20141002
  Serious: Yes (Other)
  Sender: FDA-Public Use
  Company Number: US-PFIZER INC-2014032367

PATIENT
  Age: 47 Year
  Sex: Male

DRUGS (3)
  1. LYRICA [Suspect]
     Indication: TRIGEMINAL NEURALGIA
     Dosage: 150 MG, 2X/DAY
     Route: 048
  2. LYRICA [Suspect]
     Indication: POST-TRAUMATIC STRESS DISORDER
  3. NEURONTIN [Concomitant]
     Dosage: 800 MG, 3X/DAY (1 TAB PO TID)
     Route: 048

REACTIONS (12)
  - Off label use [Unknown]
  - Post-traumatic stress disorder [Recovering/Resolving]
  - Crime [Unknown]
  - Paranoia [Recovering/Resolving]
  - Personality change [Recovering/Resolving]
  - Hypervigilance [Recovering/Resolving]
  - Mood swings [Recovering/Resolving]
  - Nightmare [Recovering/Resolving]
  - Flashback [Recovering/Resolving]
  - Phobic avoidance [Recovering/Resolving]
  - Emotional disorder [Recovering/Resolving]
  - Abnormal behaviour [Recovering/Resolving]
